FAERS Safety Report 17511864 (Version 1)
Quarter: 2020Q1

REPORT INFORMATION
  Report Type: Report from Study
  Country: US (occurrence: US)
  Receive Date: 20200308
  Receipt Date: 20200308
  Transmission Date: 20200409
  Serious: Yes (Hospitalization)
  Sender: FDA-Public Use
  Company Number: NVSC2020US064551

PATIENT
  Age: 39 Year
  Sex: Male
  Weight: 109 kg

DRUGS (5)
  1. GSK2118436 [Suspect]
     Active Substance: DABRAFENIB
     Dosage: UNK
     Route: 048
  2. GSK2118436 [Suspect]
     Active Substance: DABRAFENIB
     Indication: METASTATIC MALIGNANT MELANOMA
     Dosage: 100 MG
     Route: 048
     Dates: start: 20200127, end: 20200212
  3. TRAMETINIB [Suspect]
     Active Substance: TRAMETINIB
     Indication: METASTATIC MALIGNANT MELANOMA
     Dosage: 1.5 MG
     Route: 048
     Dates: start: 20200127, end: 20200210
  4. NAVITOCLAX [Suspect]
     Active Substance: NAVITOCLAX
     Indication: METASTATIC MALIGNANT MELANOMA
     Dosage: 150 MG
     Route: 048
     Dates: start: 20200127, end: 20200210
  5. NAVITOCLAX [Suspect]
     Active Substance: NAVITOCLAX
     Dosage: UNK
     Route: 048

REACTIONS (1)
  - Dehydration [Recovering/Resolving]

NARRATIVE: CASE EVENT DATE: 20200212
